FAERS Safety Report 23581075 (Version 4)
Quarter: 2025Q2

REPORT INFORMATION
  Report Type: Spontaneous
  Country: CZ (occurrence: CZ)
  Receive Date: 20240229
  Receipt Date: 20250421
  Transmission Date: 20250716
  Serious: Yes (Other)
  Sender: TEVA
  Company Number: None

PATIENT
  Age: 26 Year
  Sex: Female

DRUGS (1)
  1. AJOVY [Suspect]
     Active Substance: FREMANEZUMAB-VFRM
     Indication: Migraine
     Dosage: AJOVY INJ SOL ISP
     Route: 058
     Dates: start: 20220603, end: 20240128

REACTIONS (2)
  - Abortion missed [Unknown]
  - Maternal exposure timing unspecified [Unknown]
